FAERS Safety Report 19471304 (Version 7)
Quarter: 2021Q3

REPORT INFORMATION
  Report Type: Report from Study
  Country: CH (occurrence: CH)
  Receive Date: 20210629
  Receipt Date: 20210902
  Transmission Date: 20211014
  Serious: Yes (Hospitalization)
  Sender: FDA-Public Use
  Company Number: CH-BRISTOL-MYERS SQUIBB COMPANY-BMS-2021-061767

PATIENT
  Age: 65 Year
  Sex: Female
  Weight: 48 kg

DRUGS (28)
  1. CYCLOPHOSPHAMIDE. [Suspect]
     Active Substance: CYCLOPHOSPHAMIDE
     Indication: METASTATIC MALIGNANT MELANOMA
     Dosage: 3186 MILLIGRAM, QD
     Route: 042
     Dates: start: 20201214, end: 20201215
  2. VALACICLOVIR [Concomitant]
     Active Substance: VALACYCLOVIR HYDROCHLORIDE
     Indication: INFECTION PROPHYLAXIS
     Dosage: 500 MILLIGRAM, BID
     Route: 065
     Dates: start: 20201219, end: 20201223
  3. VALACICLOVIR [Concomitant]
     Active Substance: VALACYCLOVIR HYDROCHLORIDE
     Dosage: 500 MILLIGRAM, QD
     Route: 048
     Dates: start: 20201223, end: 20210113
  4. VALACICLOVIR [Concomitant]
     Active Substance: VALACYCLOVIR HYDROCHLORIDE
     Dosage: 500 MILLIGRAM, BID
     Route: 048
     Dates: start: 20210113
  5. METOCLOPRAMIDE. [Concomitant]
     Active Substance: METOCLOPRAMIDE
     Indication: NAUSEA
     Dosage: 10 MILLIGRAM, TID
     Route: 048
     Dates: start: 20210413, end: 20210622
  6. METOCLOPRAMIDE. [Concomitant]
     Active Substance: METOCLOPRAMIDE
     Dosage: 10 MILLIGRAM, AS NEEDED
     Route: 048
     Dates: start: 20210625
  7. FOLATE [Concomitant]
     Active Substance: FOLATE SODIUM
     Indication: FOLATE DEFICIENCY
     Dosage: 5 MILLIGRAM
     Route: 048
     Dates: start: 20210511
  8. MENINGOCOCCAL POLYSACCHARIDE VACCINE A NOS [Concomitant]
     Active Substance: MENINGOCOCCAL POLYSACCHARIDE VACCINE A\NEISSERIA MENINGITIDIS GROUP A CAPSULAR POLYSACCHARIDE ANTIGEN
     Indication: MENINGOCOCCAL INFECTION
     Dosage: 1 UNIT, QD
     Route: 030
     Dates: start: 20210623
  9. INTERLEUKIN?2 [Suspect]
     Active Substance: ALDESLEUKIN
     Dosage: 38.016, UI, 3 TIMES
     Route: 042
     Dates: start: 20201222, end: 20201222
  10. TUMOR?INFILTRATING LYMPHOCYTES [Suspect]
     Active Substance: LYMPHOCYTES
     Indication: METASTATIC MALIGNANT MELANOMA
     Dosage: 55.0 X 10E9 TILS, ONCE
     Route: 042
     Dates: start: 20201221, end: 20201221
  11. ACETAMINOPHEN. [Concomitant]
     Active Substance: ACETAMINOPHEN
     Indication: PAIN PROPHYLAXIS
     Dosage: 1 GRAM
     Route: 048
     Dates: start: 20201118, end: 20210621
  12. IBUPROFEN. [Concomitant]
     Active Substance: IBUPROFEN
     Indication: PAIN PROPHYLAXIS
     Dosage: UNK
     Route: 065
     Dates: start: 20201118
  13. MAGALDRATE [Concomitant]
     Active Substance: MAGALDRATE
     Indication: GASTROOESOPHAGEAL REFLUX DISEASE
     Dosage: 10 MILLILITER
     Route: 048
     Dates: start: 20210222
  14. TRAMETINIB [Concomitant]
     Active Substance: TRAMETINIB
     Dosage: UNK
     Route: 065
     Dates: start: 20210707, end: 20210723
  15. COLECALCIFEROL [Concomitant]
     Active Substance: CHOLECALCIFEROL
     Indication: VITAMIN D DEFICIENCY
     Dosage: 4 DROP, QD
     Route: 048
     Dates: start: 20201215
  16. FLUDARABINE PHOSPHATE. [Suspect]
     Active Substance: FLUDARABINE PHOSPHATE
     Indication: METASTATIC MALIGNANT MELANOMA
     Dosage: 31.494 MILLIGRAM, QD
     Route: 042
     Dates: start: 20201214, end: 20201218
  17. TRAMETINIB [Concomitant]
     Active Substance: TRAMETINIB
     Indication: METASTATIC MALIGNANT MELANOMA
     Dosage: UNK
     Route: 065
     Dates: start: 20210701, end: 20210703
  18. NIVOLUMAB [Suspect]
     Active Substance: NIVOLUMAB
     Indication: METASTATIC MALIGNANT MELANOMA
     Dosage: 240 MILLIGRAM, Q2WK
     Route: 042
     Dates: start: 20210302, end: 20210611
  19. NIVOLUMAB [Suspect]
     Active Substance: NIVOLUMAB
     Dosage: 3 MILLIGRAM/KILOGRAM
     Route: 065
     Dates: start: 20210726
  20. NIVOLUMAB [Concomitant]
     Active Substance: NIVOLUMAB
     Indication: METASTATIC MALIGNANT MELANOMA
     Dosage: 3 MILLIGRAM/KILOGRAM
     Route: 042
     Dates: start: 20210726, end: 20210726
  21. IPILIMUMAB [Concomitant]
     Active Substance: IPILIMUMAB
     Indication: METASTATIC MALIGNANT MELANOMA
     Dosage: 1 MILLIGRAM/KILOGRAM
     Route: 065
     Dates: start: 20210726
  22. PREVENAR [Concomitant]
     Active Substance: PNEUMOCOCCAL 7-VALENT CONJUGATE VACCINE (DIPHTHERIA CRM197 PROTEIN)
     Indication: PNEUMOCOCCAL INFECTION
     Dosage: 1 UNIT, QD
     Route: 030
     Dates: start: 20210624, end: 20210624
  23. INTERLEUKIN?2 [Suspect]
     Active Substance: ALDESLEUKIN
     Indication: METASTATIC MALIGNANT MELANOMA
     Dosage: 38.016, UI, ONCE
     Route: 042
     Dates: start: 20201221, end: 20201221
  24. ACETAMINOPHEN. [Concomitant]
     Active Substance: ACETAMINOPHEN
     Dosage: 1 GRAM AS NEEDED
     Route: 048
     Dates: start: 20210625, end: 20210630
  25. COLECALCIFEROL [Concomitant]
     Active Substance: CHOLECALCIFEROL
     Indication: HYPOCALCAEMIA
     Dosage: 1 TAB, QD
     Route: 048
     Dates: start: 20201224
  26. FORTIMEL [Concomitant]
     Active Substance: DIETARY SUPPLEMENT
     Dosage: 1 UNIT 3 TIMES A DAY
     Route: 048
     Dates: start: 20210713
  27. PRIVIGEN [Concomitant]
     Active Substance: HUMAN IMMUNOGLOBULIN G
     Indication: PLATELET COUNT DECREASED
     Dosage: 48 GRAM, BID
     Route: 042
     Dates: start: 20210622, end: 20210623
  28. FORTIMEL [Concomitant]
     Active Substance: DIETARY SUPPLEMENT
     Indication: WEIGHT DECREASED
     Dosage: ORAL NUTRITION SUPPLEMENT, 1 BOTTLE ONCE DAILY
     Route: 048
     Dates: start: 20210420, end: 20210621

REACTIONS (1)
  - Platelet count decreased [Recovered/Resolved]

NARRATIVE: CASE EVENT DATE: 20210622
